FAERS Safety Report 8240333-4 (Version None)
Quarter: 2012Q1

REPORT INFORMATION
  Report Type: 
  Country: None (occurrence: None)
  Receive Date: 20120309
  Receipt Date: 20110317
  Transmission Date: 20120608
  Serious: Yes (Other)
  Sender: FDA-Public Use
  Company Number: PHHY2010US81919

PATIENT
  Age: 44 Year
  Sex: Female

DRUGS (1)
  1. EXTAVIA [Suspect]
     Indication: MULTIPLE SCLEROSIS
     Dosage: 0.25 MG, QOD, SUBCUTANEOUS
     Route: 058
     Dates: start: 20101120

REACTIONS (7)
  - DEPRESSION [None]
  - NASOPHARYNGITIS [None]
  - ARTHRALGIA [None]
  - ALOPECIA [None]
  - HEADACHE [None]
  - INFLUENZA LIKE ILLNESS [None]
  - DRY SKIN [None]
